FAERS Safety Report 10041476 (Version 1)
Quarter: 2014Q1

REPORT INFORMATION
  Report Type: Spontaneous
  Country: DE (occurrence: DE)
  Receive Date: 20140327
  Receipt Date: 20140327
  Transmission Date: 20141002
  Serious: Yes (Life-Threatening, Hospitalization)
  Sender: FDA-Public Use
  Company Number: DE-TEVA-469536GER

PATIENT
  Age: 38 Year
  Sex: Female
  Weight: 52 kg

DRUGS (1)
  1. CABERGOLINE [Suspect]
     Indication: HYPERPROLACTINAEMIA
     Dosage: 1X1 EVERY THIRD DAY
     Dates: start: 20131014, end: 20131022

REACTIONS (3)
  - Acute myocardial infarction [Recovered/Resolved]
  - Angina pectoris [Recovered/Resolved]
  - Malaise [Recovered/Resolved]
